FAERS Safety Report 6918530-7 (Version None)
Quarter: 2010Q3

REPORT INFORMATION
  Report Type: 
  Country: None (occurrence: None)
  Receive Date: 20100811
  Receipt Date: 20100811
  Transmission Date: 20110219
  Serious: No
  Sender: FDA-Public Use
  Company Number: US-JNJFOC-20100800590

PATIENT

DRUGS (3)
  1. FENTANYL CITRATE [Suspect]
     Indication: MULTIPLE SCLEROSIS
     Route: 062
  2. FENTANYL CITRATE [Suspect]
     Route: 062
  3. VICODIN [Suspect]
     Indication: PAIN
     Route: 065

REACTIONS (4)
  - FATIGUE [None]
  - PAIN [None]
  - TREATMENT NONCOMPLIANCE [None]
  - VOMITING [None]
